FAERS Safety Report 7707269-6 (Version None)
Quarter: 2011Q3

REPORT INFORMATION
  Report Type: 
  Country: None (occurrence: None)
  Receive Date: 20110824
  Receipt Date: 20110817
  Transmission Date: 20111222
  Serious: Yes (Other)
  Sender: FDA-Public Use
  Company Number: PHFR2011GB04888

PATIENT

DRUGS (2)
  1. EXELON [Suspect]
     Dosage: 4.5 MG, UNK
     Route: 062
  2. EXELON [Suspect]
     Dosage: 9.5 MG, UNK
     Route: 062

REACTIONS (2)
  - MENTAL IMPAIRMENT [None]
  - APPLICATION SITE RASH [None]
